FAERS Safety Report 6079827-9 (Version None)
Quarter: 2009Q1

REPORT INFORMATION
  Report Type: 
  Country: None (occurrence: None)
  Receive Date: 20090217
  Receipt Date: 20090205
  Transmission Date: 20090719
  Serious: Yes (Hospitalization)
  Sender: FDA-Public Use
  Company Number: US-BIOGENIDEC-2006BI000695

PATIENT
  Sex: Female
  Weight: 83 kg

DRUGS (5)
  1. AVONEX [Suspect]
     Indication: MULTIPLE SCLEROSIS
     Route: 030
     Dates: start: 20050926
  2. ATENOLOL [Concomitant]
     Indication: ARRHYTHMIA
  3. RAMIPRIL [Concomitant]
     Indication: ARRHYTHMIA
  4. AVANDIA [Concomitant]
     Indication: TYPE 2 DIABETES MELLITUS
  5. NEXIUM [Concomitant]
     Indication: HYPERCHLORHYDRIA

REACTIONS (13)
  - ARRHYTHMIA [None]
  - ARTERIAL OCCLUSIVE DISEASE [None]
  - BLOOD CHOLESTEROL INCREASED [None]
  - CHEST PAIN [None]
  - CHILLS [None]
  - COAGULATION TEST ABNORMAL [None]
  - HEART RATE INCREASED [None]
  - INFLUENZA LIKE ILLNESS [None]
  - MUSCLE SPASMS [None]
  - MYOCARDIAL INFARCTION [None]
  - PRURITUS ALLERGIC [None]
  - SLEEP DISORDER [None]
  - VITAMIN B12 DEFICIENCY [None]
